FAERS Safety Report 10078859 (Version 1)
Quarter: 2014Q2

REPORT INFORMATION
  Report Type: Spontaneous
  Country: US (occurrence: US)
  Receive Date: 20140415
  Receipt Date: 20140415
  Transmission Date: 20141212
  Serious: No
  Sender: FDA-Public Use
  Company Number: US-B.I. PHARMACEUTICALS,INC./RIDGEFIELD-2014-BI-15136BP

PATIENT
  Age: 58 Year
  Sex: Male

DRUGS (4)
  1. ALBUTEROL [Concomitant]
     Indication: INHALATION THERAPY
     Route: 055
  2. VITAMIN D [Concomitant]
     Route: 048
  3. SPIRIVA [Suspect]
     Indication: CHRONIC OBSTRUCTIVE PULMONARY DISEASE
     Dosage: 18 MCG
     Route: 055
     Dates: start: 20140327, end: 20140401
  4. SPIRIVA [Suspect]
     Indication: EMPHYSEMA

REACTIONS (4)
  - Sinus headache [Not Recovered/Not Resolved]
  - Dysphonia [Not Recovered/Not Resolved]
  - Throat irritation [Not Recovered/Not Resolved]
  - Oropharyngeal pain [Not Recovered/Not Resolved]
